FAERS Safety Report 10304773 (Version 3)
Quarter: 2015Q2

REPORT INFORMATION
  Report Type: Spontaneous
  Country: US (occurrence: US)
  Receive Date: 20140715
  Receipt Date: 20150626
  Transmission Date: 20150821
  Serious: Yes (Other)
  Sender: FDA-Public Use
  Company Number: US-UCBSA-2014005161

PATIENT
  Age: 32 Year
  Sex: Male
  Weight: 72.56 kg

DRUGS (1)
  1. KEPPRA [Suspect]
     Active Substance: LEVETIRACETAM
     Indication: SEIZURE
     Dosage: 1500 MG, 2X/DAY (BID) (3 OF 500 MG EACH TIME)
     Route: 048
     Dates: start: 2014

REACTIONS (1)
  - Anaplastic astrocytoma [Unknown]

NARRATIVE: CASE EVENT DATE: 20140701
